FAERS Safety Report 16983180 (Version 1)
Quarter: 2019Q4

REPORT INFORMATION
  Report Type: Spontaneous
  Country: GB (occurrence: GB)
  Receive Date: 20191101
  Receipt Date: 20191101
  Transmission Date: 20200122
  Serious: Yes (Hospitalization, Other)
  Sender: FDA-Public Use
  Company Number: GB-ASTRAZENECA-2019SF52395

PATIENT
  Age: 55 Year
  Sex: Male
  Weight: 172.4 kg

DRUGS (7)
  1. PREDNISONE. [Concomitant]
     Active Substance: PREDNISONE
     Indication: OBSESSIVE-COMPULSIVE SYMPTOM
     Dosage: 30 MG/DAY
  2. PREDNISOLONE. [Concomitant]
     Active Substance: PREDNISOLONE
     Indication: OBSESSIVE-COMPULSIVE SYMPTOM
     Dosage: 5 MG PER DAY
  3. FASENRA [Suspect]
     Active Substance: BENRALIZUMAB
     Dosage: 5 MG/DAY
     Route: 058
  4. SYMBICORT [Suspect]
     Active Substance: BUDESONIDE\FORMOTEROL FUMARATE DIHYDRATE
     Dosage: 160/4.5 MCG TWO PUFFS TWICE A DAY
     Route: 055
  5. TIOTROPIUM [Concomitant]
     Active Substance: TIOTROPIUM
  6. PREDNISOLONE. [Concomitant]
     Active Substance: PREDNISOLONE
     Indication: OBSESSIVE-COMPULSIVE SYMPTOM
     Dosage: 1 MG EVERY TWO WEEKS
  7. PREDNISOLONE. [Concomitant]
     Active Substance: PREDNISOLONE
     Indication: OBSESSIVE-COMPULSIVE SYMPTOM
     Dosage: 2 MG PER DAY

REACTIONS (6)
  - Gastroenteritis [Unknown]
  - Hypotension [Unknown]
  - Adrenocortical insufficiency acute [Unknown]
  - Dizziness [Unknown]
  - Pain [Unknown]
  - Fatigue [Unknown]
